FAERS Safety Report 23962214 (Version 1)
Quarter: 2024Q2

REPORT INFORMATION
  Report Type: Spontaneous
  Country: US (occurrence: None)
  Receive Date: 20240610
  Receipt Date: 20240610
  Transmission Date: 20240716
  Serious: Yes (Disabling)
  Sender: FDA-Public Use
  Company Number: None

PATIENT
  Age: 47 Year
  Sex: Female

DRUGS (1)
  1. LINZESS [Suspect]
     Active Substance: LINACLOTIDE
     Indication: Constipation
     Dosage: 1 CAPSULE DAILY ORAL
     Route: 048
     Dates: start: 20190101, end: 20240408

REACTIONS (6)
  - Oesophageal ulcer [None]
  - Gastric ulcer [None]
  - Hiatus hernia [None]
  - Upper-airway cough syndrome [None]
  - Large intestine polyp [None]
  - Haemorrhoids [None]

NARRATIVE: CASE EVENT DATE: 20240409
